FAERS Safety Report 7360964-3 (Version None)
Quarter: 2011Q1

REPORT INFORMATION
  Report Type: 
  Country: None (occurrence: None)
  Receive Date: 20110318
  Receipt Date: 20110315
  Transmission Date: 20110831
  Serious: Yes (Other)
  Sender: FDA-Public Use
  Company Number: DK-PFIZER INC-2010172223

PATIENT
  Age: 42 Year
  Sex: Female

DRUGS (6)
  1. ELTROXIN [Concomitant]
     Dosage: 150 UG, 1X/DAY
     Dates: start: 20101111
  2. ELTROXIN [Concomitant]
     Dosage: 100 UG, 1X/DAY
     Route: 048
     Dates: start: 19710715
  3. DESMOPRESSIN ACETATE [Concomitant]
     Dosage: 2.5 UG, 2X/DAY
     Route: 045
     Dates: start: 19710715
  4. SOMATROPIN [Suspect]
     Indication: GROWTH HORMONE DEFICIENCY
     Dosage: 0.5 MG, 1X/DAY
     Dates: start: 19970416
  5. AMLODIPINE [Concomitant]
     Dosage: UNK
     Dates: end: 20101109
  6. HYDROCORTISON [Concomitant]
     Dosage: 20 MG, 1X/DAY
     Dates: start: 19910623

REACTIONS (1)
  - NO ADVERSE EVENT [None]
